FAERS Safety Report 24622565 (Version 2)
Quarter: 2025Q3

REPORT INFORMATION
  Report Type: Spontaneous
  Country: JP (occurrence: JP)
  Receive Date: 20241115
  Receipt Date: 20250810
  Transmission Date: 20251020
  Serious: Yes (Hospitalization, Other)
  Sender: ALEXION PHARMACEUTICALS
  Company Number: JP-ASTRAZENECA-240096366_012620_P_1

PATIENT
  Age: 49 Year
  Sex: Female
  Weight: 52 kg

DRUGS (14)
  1. TRUQAP [Suspect]
     Active Substance: CAPIVASERTIB
     Indication: Breast cancer
     Dates: start: 20240815, end: 20240828
  2. TRUQAP [Suspect]
     Active Substance: CAPIVASERTIB
     Dates: start: 20241003, end: 20250123
  3. FASLODEX [Suspect]
     Active Substance: FULVESTRANT
     Indication: Breast cancer
     Dates: start: 20240815, end: 20240815
  4. FASLODEX [Suspect]
     Active Substance: FULVESTRANT
  5. HERBALS [Suspect]
     Active Substance: HERBALS
     Indication: Malaise
     Dosage: 2.5 GRAM, TID
     Dates: start: 20240718, end: 20240828
  6. LASIX [Concomitant]
     Active Substance: FUROSEMIDE
  7. MIROGABALIN BESYLATE [Concomitant]
     Active Substance: MIROGABALIN BESYLATE
  8. Lopemin [Concomitant]
  9. ZOLEDRONIC [Concomitant]
     Active Substance: ZOLEDRONIC ACID
  10. LOXOPROFEN SODIUM [Concomitant]
     Active Substance: LOXOPROFEN SODIUM
  11. BETAMETHASONE [Concomitant]
     Active Substance: BETAMETHASONE
  12. ZINC OXIDE [Concomitant]
     Active Substance: ZINC OXIDE
  13. GLYCOSAMINOGLYCANS [Concomitant]
     Active Substance: GLYCOSAMINOGLYCANS
  14. GLYCOSAMINOGLYCANS [Concomitant]
     Active Substance: GLYCOSAMINOGLYCANS
     Route: 065

REACTIONS (1)
  - Stevens-Johnson syndrome [Recovered/Resolved]

NARRATIVE: CASE EVENT DATE: 20240827
